FAERS Safety Report 17788088 (Version 2)
Quarter: 2020Q2

REPORT INFORMATION
  Report Type: Spontaneous
  Country: US (occurrence: US)
  Receive Date: 20200515
  Receipt Date: 20200611
  Transmission Date: 20200714
  Serious: No
  Sender: FDA-Public Use
  Company Number: US-SHIRE-US202016270

PATIENT
  Sex: Female

DRUGS (1)
  1. GATTEX [Suspect]
     Active Substance: TEDUGLUTIDE\WATER
     Indication: SHORT-BOWEL SYNDROME
     Dosage: 0.250 UNIT UNKNOWN.
     Route: 058
     Dates: start: 20200503

REACTIONS (3)
  - Intentional product use issue [Not Recovered/Not Resolved]
  - Muscle spasms [Recovering/Resolving]
  - Weight increased [Not Recovered/Not Resolved]
